FAERS Safety Report 20403970 (Version 2)
Quarter: 2022Q1

REPORT INFORMATION
  Report Type: Spontaneous
  Country: HU (occurrence: HU)
  Receive Date: 20220131
  Receipt Date: 20220208
  Transmission Date: 20220423
  Serious: Yes (Hospitalization, Other)
  Sender: FDA-Public Use
  Company Number: HU-AMGEN-HUNSP2022014151

PATIENT
  Sex: Male

DRUGS (5)
  1. VECTIBIX [Suspect]
     Active Substance: PANITUMUMAB
     Indication: Rectal adenocarcinoma
     Dosage: UNK UNK, CYCLICAL
     Route: 065
     Dates: start: 20220113
  2. CAPECITABINE [Concomitant]
     Active Substance: CAPECITABINE
     Indication: Rectal adenocarcinoma
     Dosage: 3 DOSAGE FORM, BID
     Dates: start: 20210519
  3. OXALIPLATIN [Concomitant]
     Active Substance: OXALIPLATIN
     Indication: Rectal adenocarcinoma
     Dosage: UNK
     Dates: start: 20220113
  4. LEUCOVORIN [Concomitant]
     Active Substance: LEUCOVORIN
     Indication: Rectal adenocarcinoma
     Dosage: UNK
     Dates: start: 20220113
  5. FLUOROURACIL [Concomitant]
     Active Substance: FLUOROURACIL
     Indication: Rectal adenocarcinoma
     Dosage: UNK
     Dates: start: 20220113

REACTIONS (13)
  - Arthralgia [Unknown]
  - Rash erythematous [Recovering/Resolving]
  - Palpitations [Unknown]
  - Heart rate decreased [Unknown]
  - Dyspepsia [Unknown]
  - Decreased appetite [Unknown]
  - Dyschezia [Unknown]
  - Burning sensation [Unknown]
  - Swelling face [Unknown]
  - Tenderness [Unknown]
  - Pyrexia [Not Recovered/Not Resolved]
  - Pruritus [Unknown]
  - Chills [Unknown]

NARRATIVE: CASE EVENT DATE: 20220101
